FAERS Safety Report 8976049 (Version 3)
Quarter: 2013Q1

REPORT INFORMATION
  Report Type: Spontaneous
  Country: US (occurrence: US)
  Receive Date: 20121219
  Receipt Date: 20130211
  Transmission Date: 20140127
  Serious: Yes (Other)
  Sender: FDA-Public Use
  Company Number: US-ROCHE-1170587

PATIENT
  Age: 56 Year
  Sex: Male
  Weight: 115.77 kg

DRUGS (8)
  1. PEGASYS [Suspect]
     Indication: HEPATITIS C
     Route: 048
     Dates: start: 20120626, end: 20121114
  2. RIBASPHERE [Suspect]
     Indication: HEPATITIS C
     Route: 048
     Dates: start: 20120626, end: 20121114
  3. INCIVEK [Suspect]
     Indication: HEPATITIS C
     Route: 048
     Dates: start: 20120626, end: 20120918
  4. OMEPRAZOLE [Concomitant]
     Route: 048
     Dates: start: 20120603
  5. ALEVE [Concomitant]
     Indication: PAIN
     Route: 048
  6. COLACE [Concomitant]
     Indication: CONSTIPATION
     Route: 048
  7. MVI [Concomitant]
     Route: 048
  8. CLOBETASOL [Concomitant]
     Route: 061
     Dates: start: 201211

REACTIONS (2)
  - Neoplasm malignant [Unknown]
  - Rash [Unknown]
